FAERS Safety Report 11726888 (Version 1)
Quarter: 2015Q4

REPORT INFORMATION
  Report Type: Spontaneous
  Country: DE (occurrence: DE)
  Receive Date: 20151112
  Receipt Date: 20151112
  Transmission Date: 20160304
  Serious: Yes (Hospitalization)
  Sender: FDA-Public Use
  Company Number: DE-WEST-WARD PHARMACEUTICALS CORP.-DE-H14001-15-01922

PATIENT
  Age: 57 Year
  Sex: Male

DRUGS (2)
  1. BLEOCIN S [Suspect]
     Active Substance: BLEOMYCIN SULFATE
     Indication: TESTICULAR CANCER METASTATIC
     Route: 065
     Dates: end: 2015
  2. CISPLATIN. [Suspect]
     Active Substance: CISPLATIN
     Indication: TESTICULAR CANCER METASTATIC
     Route: 065
     Dates: end: 2015

REACTIONS (3)
  - Retinal vein occlusion [Unknown]
  - Macular oedema [Unknown]
  - Ophthalmic vein thrombosis [Unknown]

NARRATIVE: CASE EVENT DATE: 20151103
